FAERS Safety Report 21736588 (Version 1)
Quarter: 2022Q4

REPORT INFORMATION
  Report Type: Spontaneous
  Country: ZA (occurrence: ZA)
  Receive Date: 20221216
  Receipt Date: 20221216
  Transmission Date: 20230113
  Serious: Yes (Other)
  Sender: FDA-Public Use
  Company Number: ZA-SA-SAC20221213001143

PATIENT
  Sex: Female

DRUGS (3)
  1. CHLOROQUINE [Suspect]
     Active Substance: CHLOROQUINE
     Dosage: UNK, QD
     Dates: start: 202009, end: 202210
  2. SULFASALAZINE [Suspect]
     Active Substance: SULFASALAZINE
     Dosage: UNK, QD
     Dates: start: 201701, end: 202204
  3. LEFLUNOMIDE [Suspect]
     Active Substance: LEFLUNOMIDE
     Dosage: UNK
     Dates: start: 202010

REACTIONS (5)
  - Hypothyroidism [Unknown]
  - Toxicity to various agents [Unknown]
  - Hypertension [Unknown]
  - Depression [Unknown]
  - Treatment failure [Unknown]
